FAERS Safety Report 4710974-7 (Version None)
Quarter: 2005Q3

REPORT INFORMATION
  Report Type: 
  Country: None (occurrence: None)
  Receive Date: 20050711
  Receipt Date: 20050511
  Transmission Date: 20060218
  Serious: Yes (Hospitalization)
  Sender: FDA-Public Use
  Company Number: DE-BRISTOL-MYERS SQUIBB COMPANY-12965455

PATIENT
  Age: 38 Year
  Sex: Female
  Weight: 65 kg

DRUGS (5)
  1. PACLITAXEL [Suspect]
     Indication: BREAST CANCER
     Route: 042
  2. CYCLOPHOSPHAMIDE [Suspect]
     Indication: BREAST CANCER
     Route: 042
  3. EPIRUBICIN [Suspect]
     Indication: BREAST CANCER
     Route: 042
     Dates: start: 20050113, end: 20050113
  4. ARANESP [Concomitant]
     Route: 058
     Dates: start: 20041217, end: 20050429
  5. NEULASTA [Concomitant]
     Route: 058
     Dates: start: 20041217, end: 20050429

REACTIONS (1)
  - WOUND INFECTION [None]
